FAERS Safety Report 23797908 (Version 2)
Quarter: 2024Q2

REPORT INFORMATION
  Report Type: Spontaneous
  Country: JP (occurrence: JP)
  Receive Date: 20240430
  Receipt Date: 20240527
  Transmission Date: 20240716
  Serious: Yes (Life-Threatening, Hospitalization, Other)
  Sender: FDA-Public Use
  Company Number: JP-TAKEDA-2023TUS034972

PATIENT
  Age: 46 Year
  Sex: Female
  Weight: 42 kg

DRUGS (44)
  1. INTUNIV [Suspect]
     Active Substance: GUANFACINE HYDROCHLORIDE
     Indication: Attention deficit hyperactivity disorder
     Dosage: 1 MILLIGRAM, QD
     Route: 048
     Dates: start: 20210320, end: 20210412
  2. INTUNIV [Suspect]
     Active Substance: GUANFACINE HYDROCHLORIDE
     Dosage: 2 MILLIGRAM, QD
     Route: 048
     Dates: start: 20210413, end: 20210427
  3. INTUNIV [Suspect]
     Active Substance: GUANFACINE HYDROCHLORIDE
     Dosage: 3 MILLIGRAM, QD
     Route: 048
     Dates: start: 20210427, end: 20210510
  4. INTUNIV [Suspect]
     Active Substance: GUANFACINE HYDROCHLORIDE
     Dosage: 2 MILLIGRAM, QD
     Route: 048
     Dates: start: 20210511, end: 20211025
  5. INTUNIV [Suspect]
     Active Substance: GUANFACINE HYDROCHLORIDE
     Dosage: 3 MILLIGRAM, QD
     Route: 048
     Dates: start: 20211026, end: 20220103
  6. INTUNIV [Suspect]
     Active Substance: GUANFACINE HYDROCHLORIDE
     Dosage: 4 MILLIGRAM, QD
     Route: 048
     Dates: start: 20220104
  7. INTUNIV [Suspect]
     Active Substance: GUANFACINE HYDROCHLORIDE
     Dosage: 3 MILLIGRAM, QD
     Route: 048
     Dates: end: 20230329
  8. INSULIN NOS [Suspect]
     Active Substance: INSULIN NOS
     Indication: Product used for unknown indication
     Dosage: UNK
     Route: 065
  9. EURODIN [Concomitant]
     Dosage: UNK
     Route: 065
  10. LICORICE ROOT EXTRACT\RHUBARB [Concomitant]
     Active Substance: LICORICE ROOT EXTRACT\RHUBARB
     Dosage: UNK
     Route: 065
     Dates: end: 20210608
  11. SODIUM PICOSULFATE [Concomitant]
     Active Substance: SODIUM PICOSULFATE
     Dosage: UNK
     Route: 065
     Dates: start: 20210608
  12. ETHYL LOFLAZEPATE [Concomitant]
     Active Substance: ETHYL LOFLAZEPATE
     Dosage: 1 MILLIGRAM, QD
     Route: 065
     Dates: end: 20210608
  13. ZOLPIDEM TARTRATE [Concomitant]
     Active Substance: ZOLPIDEM TARTRATE
     Dosage: 5 MILLIGRAM, QD
     Route: 065
     Dates: end: 20220104
  14. LORAZEPAM [Concomitant]
     Active Substance: LORAZEPAM
     Dosage: 1 MILLIGRAM, QD
     Route: 065
     Dates: end: 20220104
  15. LUNESTA [Concomitant]
     Active Substance: ESZOPICLONE
     Dosage: 3 MILLIGRAM, QD
     Route: 065
     Dates: end: 20220104
  16. BELSOMRA [Concomitant]
     Active Substance: SUVOREXANT
     Dosage: 15 MILLIGRAM, QD
     Route: 065
     Dates: start: 20220104, end: 20220302
  17. DAYVIGO [Concomitant]
     Active Substance: LEMBOREXANT
     Dosage: 2.5 MILLIGRAM, QD
     Route: 048
     Dates: start: 20220104
  18. DAYVIGO [Concomitant]
     Active Substance: LEMBOREXANT
     Route: 048
     Dates: start: 20220302
  19. VALPROATE SODIUM [Concomitant]
     Active Substance: VALPROATE SODIUM
     Dosage: 800 MILLIGRAM
     Route: 048
  20. HALOPERIDOL [Concomitant]
     Active Substance: HALOPERIDOL
     Dosage: 1.75 MILLIGRAM, QD
     Route: 048
  21. AKINETON [Concomitant]
     Active Substance: BIPERIDEN HYDROCHLORIDE
     Dosage: 1 MILLIGRAM, QD
     Route: 048
  22. LEVOMEPROMAZINE [Concomitant]
     Active Substance: LEVOMEPROMAZINE
     Dosage: 50 MILLIGRAM, QD
     Route: 048
  23. HIBERNA [Concomitant]
     Active Substance: PROMETHAZINE HYDROCHLORIDE
     Dosage: 25 MILLIGRAM, QD
     Route: 048
  24. LAMOTRIGINE [Concomitant]
     Active Substance: LAMOTRIGINE
     Dosage: 100 MILLIGRAM, QD
     Route: 048
  25. DONEPEZIL HYDROCHLORIDE [Concomitant]
     Active Substance: DONEPEZIL HYDROCHLORIDE
     Dosage: 10 MILLIGRAM, QD
     Route: 048
  26. HERBALS [Concomitant]
     Active Substance: HERBALS
     Dosage: 2.5 GRAM, QD
     Route: 048
  27. GLYCOSAMINOGLYCANS [Concomitant]
     Active Substance: GLYCOSAMINOGLYCANS
     Dosage: 75 GRAM
     Route: 061
  28. KAMBAKUTAISOTO [Concomitant]
     Dosage: 2.5 GRAM
     Route: 048
  29. HUMIRA [Concomitant]
     Active Substance: ADALIMUMAB
     Dosage: 40 MILLIGRAM, QD
     Route: 058
  30. BISOPROLOL FUMARATE [Concomitant]
     Active Substance: BISOPROLOL FUMARATE
     Dosage: 2.5 MILLIGRAM, QD
     Route: 048
  31. DISTIGMINE BROMIDE [Concomitant]
     Active Substance: DISTIGMINE BROMIDE
     Dosage: 5 MILLIGRAM, QD
     Route: 048
  32. BETHANECHOL CHLORIDE [Concomitant]
     Active Substance: BETHANECHOL CHLORIDE
     Dosage: 15 MILLIGRAM, QD
     Route: 048
  33. NITROFURANTOIN [Concomitant]
     Active Substance: NITROFURANTOIN
     Dosage: 75 MILLIGRAM, QD
     Route: 048
  34. LANSOPRAZOLE [Concomitant]
     Active Substance: LANSOPRAZOLE
     Dosage: 15 MILLIGRAM, QD
     Route: 048
  35. LOXOPROFEN SODIUM [Concomitant]
     Active Substance: LOXOPROFEN SODIUM
     Dosage: 60 MILLIGRAM, QD
     Route: 048
  36. TEPRENONE [Concomitant]
     Active Substance: TEPRENONE
     Dosage: 50 MILLIGRAM, QD
     Route: 048
  37. EPALRESTAT [Concomitant]
     Active Substance: EPALRESTAT
     Dosage: 50 MILLIGRAM, QD
     Route: 048
  38. AMITIZA [Concomitant]
     Active Substance: LUBIPROSTONE
     Dosage: 24 MICROGRAM, QD
     Route: 048
  39. ELOBIXIBAT [Concomitant]
     Active Substance: ELOBIXIBAT
     Dosage: 15 MILLIGRAM, QD
     Route: 048
  40. SENNOSIDES A AND B [Concomitant]
     Active Substance: SENNOSIDES A AND B
     Dosage: 48 MILLIGRAM, QD
     Route: 048
  41. LOXOPROFEN SODIUM [Concomitant]
     Active Substance: LOXOPROFEN SODIUM
     Dosage: UNK, QD
     Route: 062
  42. ONEALFA [Concomitant]
     Active Substance: ALFACALCIDOL
     Dosage: 0.25 MICROGRAM, QD
     Route: 048
  43. INDERAL [Concomitant]
     Active Substance: PROPRANOLOL HYDROCHLORIDE
     Indication: Akathisia
     Dosage: 10 MILLIGRAM, QD
     Route: 048
  44. BROTIZOLAM [Concomitant]
     Active Substance: BROTIZOLAM
     Dosage: UNK
     Route: 065

REACTIONS (6)
  - Hypoglycaemia [Recovered/Resolved]
  - Eating disorder [Not Recovered/Not Resolved]
  - Hyperphagia [Not Recovered/Not Resolved]
  - Vomiting [Not Recovered/Not Resolved]
  - Hypokalaemia [Recovered/Resolved]
  - Electrocardiogram QT prolonged [Recovering/Resolving]

NARRATIVE: CASE EVENT DATE: 20220330
